FAERS Safety Report 8467825-7 (Version None)
Quarter: 2012Q2

REPORT INFORMATION
  Report Type: 
  Country: None (occurrence: None)
  Receive Date: 20120626
  Receipt Date: 20120618
  Transmission Date: 20120825
  Serious: Yes (Hospitalization)
  Sender: FDA-Public Use
  Company Number: US-GLAXOSMITHKLINE-A0981557A

PATIENT
  Age: 73 Year
  Sex: Female

DRUGS (7)
  1. PROMACTA [Suspect]
     Indication: PLATELET COUNT DECREASED
     Dosage: 25MG PER DAY
     Route: 048
     Dates: start: 20120201
  2. STEROIDS [Suspect]
     Indication: PLATELET COUNT DECREASED
     Route: 048
  3. PANTOPRAZOLE [Concomitant]
  4. ATENOLOL [Concomitant]
  5. CRESTOR [Concomitant]
  6. FISH OIL [Concomitant]
  7. ASPIRIN [Suspect]
     Indication: PRODUCT USED FOR UNKNOWN INDICATION

REACTIONS (4)
  - GASTRIC HAEMORRHAGE [None]
  - BLOOD BLISTER [None]
  - PLATELET COUNT DECREASED [None]
  - CONTUSION [None]
